FAERS Safety Report 4707693-X (Version None)
Quarter: 2005Q2

REPORT INFORMATION
  Report Type: 
  Country: None (occurrence: None)
  Receive Date: 20050629
  Receipt Date: 20050303
  Transmission Date: 20051028
  Serious: No
  Sender: FDA-Public Use
  Company Number: 05P-163-0292624-00

PATIENT
  Age: 57 Year
  Sex: Female
  Weight: 62.1428 kg

DRUGS (9)
  1. HUMIRA [Suspect]
     Indication: RHEUMATOID ARTHRITIS
     Dosage: 40 MG, 1 IN 2 WK, SUBCUTANEOUS
     Route: 058
     Dates: start: 20050101, end: 20050204
  2. PREDNISONE TAB [Concomitant]
  3. METHOTREXATE [Concomitant]
  4. HYDROXYCHLOROQUINE SULFATE [Concomitant]
  5. SULFASALAZINE [Concomitant]
  6. RISEDRONATE SODIUM [Concomitant]
  7. BABY ASPRIN [Concomitant]
  8. CALCIUM GLUCONATE [Concomitant]
  9. VITAMINS [Concomitant]

REACTIONS (2)
  - ERYTHEMA [None]
  - NEUTROPHIL COUNT DECREASED [None]
